FAERS Safety Report 13606203 (Version 1)
Quarter: 2017Q2

REPORT INFORMATION
  Report Type: Spontaneous
  Country: FR (occurrence: FR)
  Receive Date: 20170602
  Receipt Date: 20170602
  Transmission Date: 20170830
  Serious: Yes (Death, Life-Threatening, Other)
  Sender: FDA-Public Use
  Company Number: FR-CLINIGEN GROUP PLC/ CLINIGEN HEALTHCARE LTD-E2B_00005645

PATIENT
  Age: 67 Year
  Sex: Female
  Weight: 103 kg

DRUGS (2)
  1. CYMEVAN [Concomitant]
     Active Substance: GANCICLOVIR
     Indication: CYTOMEGALOVIRUS MYELOMENINGORADICULITIS
     Dates: start: 20141001
  2. FOSCAVIR [Suspect]
     Active Substance: FOSCARNET SODIUM
     Indication: CYTOMEGALOVIRUS MYELOMENINGORADICULITIS
     Route: 041
     Dates: start: 20141001

REACTIONS (11)
  - Renal failure [Unknown]
  - Hepatic failure [Unknown]
  - Hypocalcaemia [Unknown]
  - Hypomagnesaemia [Unknown]
  - Hypophosphataemia [Unknown]
  - Septic shock [Unknown]
  - Pancytopenia [Fatal]
  - Hypokalaemia [Unknown]
  - Circulatory collapse [Fatal]
  - Cardiac arrest [Recovered/Resolved]
  - Off label use [Unknown]

NARRATIVE: CASE EVENT DATE: 201410
